FAERS Safety Report 5574480-2 (Version None)
Quarter: 2007Q4

REPORT INFORMATION
  Report Type: 
  Country: None (occurrence: None)
  Receive Date: 20071227
  Receipt Date: 20071217
  Transmission Date: 20080405
  Serious: Yes (Other)
  Sender: FDA-Public Use
  Company Number: US-BAYER-200714169BCC

PATIENT
  Sex: Male

DRUGS (4)
  1. ASPIRIN [Suspect]
     Indication: PERCUTANEOUS CORONARY INTERVENTION
     Route: 065
     Dates: start: 20071114, end: 20071114
  2. ANGIOMAX [Suspect]
     Indication: PERCUTANEOUS CORONARY INTERVENTION
     Route: 042
     Dates: start: 20071114
  3. ANGIOMAX [Suspect]
     Route: 040
     Dates: start: 20071114, end: 20071114
  4. PLAVIX [Suspect]
     Indication: DRUG USE FOR UNKNOWN INDICATION
     Route: 065
     Dates: start: 20071114, end: 20071114

REACTIONS (1)
  - CORONARY ARTERY THROMBOSIS [None]
